FAERS Safety Report 6614264-7 (Version None)
Quarter: 2010Q1

REPORT INFORMATION
  Report Type: 
  Country: None (occurrence: None)
  Receive Date: 20100304
  Receipt Date: 20100222
  Transmission Date: 20100710
  Serious: Yes (Hospitalization)
  Sender: FDA-Public Use
  Company Number: FR-WYE-H13811110

PATIENT
  Sex: Male

DRUGS (13)
  1. INIPOMP [Suspect]
     Dosage: UNKNOWN
     Route: 048
     Dates: start: 20070101
  2. METHOTREXATE [Suspect]
     Route: 048
  3. COVERSYL [Suspect]
     Dosage: UNKNOWN
     Route: 048
     Dates: start: 20070101
  4. SPECIAFOLDINE [Concomitant]
     Dosage: UNKNOWN
  5. ZOLPIDEM [Concomitant]
     Dosage: UNKNOWN
     Dates: start: 20070101
  6. TARDYFERON [Concomitant]
     Dosage: UNKNOWN
     Dates: start: 20070101
  7. FORLAX [Concomitant]
     Dosage: UNKNOWN
     Dates: start: 20070101
  8. BECILAN [Concomitant]
     Dosage: UNKNOWN
     Dates: start: 20070101
  9. FOSAMAX [Concomitant]
     Dosage: UNKNOWN
     Dates: start: 20070101
  10. CORTANCYL [Concomitant]
     Dosage: UNKNOWN
     Dates: start: 20070101
  11. CREON [Concomitant]
     Dosage: UNKNOWN
     Dates: start: 20070101
  12. ZOCOR [Suspect]
     Dosage: UNKNOWN
     Route: 048
     Dates: start: 20070101
  13. CALCIDOSE [Concomitant]
     Dosage: UNKNOWN
     Dates: start: 20070101

REACTIONS (1)
  - GYNAECOMASTIA [None]
